FAERS Safety Report 18528535 (Version 1)
Quarter: 2020Q4

REPORT INFORMATION
  Report Type: Spontaneous
  Country: US (occurrence: US)
  Receive Date: 20201120
  Receipt Date: 20201120
  Transmission Date: 20210114
  Serious: No
  Sender: FDA-Public Use
  Company Number: US-3M-2019-US-024912

PATIENT
  Sex: Female

DRUGS (1)
  1. DURAPREP [Suspect]
     Active Substance: IODINE POVACRYLEX\ISOPROPYL ALCOHOL
     Indication: INFECTION PROPHYLAXIS
     Dosage: 26 ML SINGLE DOSE
     Route: 061
     Dates: start: 20191008, end: 20191008

REACTIONS (1)
  - Blister [Unknown]

NARRATIVE: CASE EVENT DATE: 20191008
